FAERS Safety Report 12486664 (Version 2)
Quarter: 2016Q2

REPORT INFORMATION
  Report Type: Spontaneous
  Country: US (occurrence: US)
  Receive Date: 20160621
  Receipt Date: 20160629
  Transmission Date: 20160815
  Serious: Yes (Other)
  Sender: FDA-Public Use
  Company Number: US-TEVA-668357USA

PATIENT
  Sex: Female

DRUGS (1)
  1. ZECUITY [Suspect]
     Active Substance: SUMATRIPTAN SUCCINATE
     Route: 062
     Dates: start: 201605

REACTIONS (11)
  - Sunburn [Recovering/Resolving]
  - Application site reaction [Unknown]
  - Application site discolouration [Not Recovered/Not Resolved]
  - Product physical issue [Unknown]
  - Application site pain [Unknown]
  - Application site urticaria [Recovering/Resolving]
  - Drug effect incomplete [Unknown]
  - Application site rash [Unknown]
  - Incorrect drug administration duration [Unknown]
  - Application site erythema [Recovering/Resolving]
  - Application site exfoliation [Not Recovered/Not Resolved]

NARRATIVE: CASE EVENT DATE: 2016
